FAERS Safety Report 22164299 (Version 3)
Quarter: 2023Q2

REPORT INFORMATION
  Report Type: Report from Study
  Country: CA (occurrence: CA)
  Receive Date: 20230403
  Receipt Date: 20230530
  Transmission Date: 20230721
  Serious: Yes (Death, Hospitalization, Other)
  Sender: FDA-Public Use
  Company Number: CA-KOREA IPSEN Pharma-2022-26784

PATIENT
  Age: 22 Year
  Sex: Male

DRUGS (1)
  1. LANREOTIDE ACETATE [Suspect]
     Active Substance: LANREOTIDE ACETATE
     Indication: Carcinoid syndrome
     Dosage: 120 MG EVERY 4 WEEKS
     Route: 058
     Dates: start: 20220823

REACTIONS (25)
  - Death [Fatal]
  - Palliative care [Fatal]
  - Cardiac failure [Recovering/Resolving]
  - Pulmonary valve replacement [Recovering/Resolving]
  - Carcinoid heart disease [Not Recovered/Not Resolved]
  - Hypervolaemia [Not Recovered/Not Resolved]
  - Failure to thrive [Not Recovered/Not Resolved]
  - Oedema peripheral [Not Recovered/Not Resolved]
  - Ascites [Not Recovered/Not Resolved]
  - Pleural effusion [Not Recovered/Not Resolved]
  - Blood albumin decreased [Not Recovered/Not Resolved]
  - Malnutrition [Not Recovered/Not Resolved]
  - Headache [Recovered/Resolved]
  - Diarrhoea [Unknown]
  - Gait disturbance [Unknown]
  - Adverse event [Unknown]
  - Product packaging issue [Unknown]
  - Product temperature excursion issue [Unknown]
  - Off label use [Unknown]
  - Hypotension [Not Recovered/Not Resolved]
  - Tachycardia [Not Recovered/Not Resolved]
  - Mobility decreased [Unknown]
  - Orthopnoea [Unknown]
  - Weight decreased [Unknown]
  - Paracentesis [Unknown]

NARRATIVE: CASE EVENT DATE: 20220101
